FAERS Safety Report 9441791 (Version 1)
Quarter: 2013Q3

REPORT INFORMATION
  Report Type: Spontaneous
  Country: US (occurrence: US)
  Receive Date: 20130806
  Receipt Date: 20130806
  Transmission Date: 20140515
  Serious: No
  Sender: FDA-Public Use
  Company Number: US-PFIZER INC-2013226067

PATIENT
  Sex: Female
  Weight: 72.56 kg

DRUGS (1)
  1. ADVIL PM [Suspect]
     Indication: PAIN
     Dosage: UNK, ONCE
     Route: 048
     Dates: start: 20130731, end: 20130731

REACTIONS (4)
  - Dizziness [Unknown]
  - Dysarthria [Unknown]
  - Feeling abnormal [Unknown]
  - Somnolence [Unknown]
